FAERS Safety Report 14527797 (Version 8)
Quarter: 2020Q1

REPORT INFORMATION
  Report Type: Spontaneous
  Country: US (occurrence: US)
  Receive Date: 20180213
  Receipt Date: 20200314
  Transmission Date: 20200409
  Serious: Yes (Other)
  Sender: FDA-Public Use
  Company Number: US-ACTELION-A-NJ2018-167423

PATIENT
  Age: 69 Year
  Sex: Female
  Weight: 75.28 kg

DRUGS (4)
  1. XARELTO [Concomitant]
     Active Substance: RIVAROXABAN
  2. OPSUMIT [Suspect]
     Active Substance: MACITENTAN
     Indication: PULMONARY ARTERIAL HYPERTENSION
     Dosage: 10 MG, QD
     Route: 048
     Dates: start: 20140721
  3. INSTAFLEX ADVANCED [Concomitant]
  4. REVATIO [Concomitant]
     Active Substance: SILDENAFIL CITRATE

REACTIONS (15)
  - Cough [Unknown]
  - Nasal congestion [Unknown]
  - Cellulitis [Unknown]
  - Heart rate decreased [Unknown]
  - Arrhythmia [Unknown]
  - Disorientation [Unknown]
  - Chest discomfort [Unknown]
  - Hypotension [Unknown]
  - Cardiac failure [Recovered/Resolved]
  - Gastrointestinal disorder [Unknown]
  - Oxygen saturation decreased [Unknown]
  - Dizziness [Unknown]
  - Arthritis [Not Recovered/Not Resolved]
  - Weight decreased [Unknown]
  - Diarrhoea [Recovered/Resolved]

NARRATIVE: CASE EVENT DATE: 201705
